FAERS Safety Report 25439921 (Version 1)
Quarter: 2025Q2

REPORT INFORMATION
  Report Type: Report from Study
  Country: US (occurrence: US)
  Receive Date: 20250616
  Receipt Date: 20250616
  Transmission Date: 20250716
  Serious: Yes (Other)
  Sender: JOHNSON AND JOHNSON
  Company Number: US-JNJFOC-20250613991

PATIENT

DRUGS (1)
  1. TECLISTAMAB [Suspect]
     Active Substance: TECLISTAMAB
     Indication: Plasma cell myeloma
     Route: 065

REACTIONS (8)
  - Bacteraemia [Unknown]
  - Pneumonia [Unknown]
  - Cholangitis [Unknown]
  - Osteomyelitis [Unknown]
  - Sinusitis [Unknown]
  - Respiratory tract infection viral [Unknown]
  - Cytomegalovirus infection [Unknown]
  - Urinary tract infection [Unknown]
